FAERS Safety Report 6712793-9 (Version None)
Quarter: 2010Q2

REPORT INFORMATION
  Report Type: 
  Country: None (occurrence: None)
  Receive Date: 20100506
  Receipt Date: 20090421
  Transmission Date: 20101027
  Serious: No
  Sender: FDA-Public Use
  Company Number: A0779946A

PATIENT
  Sex: Male

DRUGS (2)
  1. AUGMENTIN '125' [Suspect]
     Route: 048
     Dates: start: 20090401
  2. BENICAR [Concomitant]

REACTIONS (2)
  - FREQUENT BOWEL MOVEMENTS [None]
  - MUSCULOSKELETAL PAIN [None]
